FAERS Safety Report 5116672-2 (Version None)
Quarter: 2006Q3

REPORT INFORMATION
  Report Type: 
  Country: None (occurrence: None)
  Receive Date: 20060928
  Receipt Date: 20060925
  Transmission Date: 20061208
  Serious: Yes (Other)
  Sender: FDA-Public Use
  Company Number: GB-GLAXOSMITHKLINE-B0439950A

PATIENT
  Age: 39 Year
  Sex: Female
  Weight: 57 kg

DRUGS (2)
  1. ACYCLOVIR [Suspect]
     Route: 048
     Dates: start: 20060724, end: 20060728
  2. CO-DYDRAMOL [Concomitant]
     Indication: PAIN
     Route: 048
     Dates: start: 20060724, end: 20060728

REACTIONS (3)
  - HALLUCINATION [None]
  - NIGHTMARE [None]
  - SOMNOLENCE [None]
